FAERS Safety Report 19230891 (Version 1)
Quarter: 2021Q2

REPORT INFORMATION
  Report Type: Spontaneous
  Country: US (occurrence: US)
  Receive Date: 20210507
  Receipt Date: 20210507
  Transmission Date: 20210717
  Serious: Yes (Death)
  Sender: FDA-Public Use
  Company Number: None

PATIENT
  Age: 70 Year
  Sex: Male

DRUGS (1)
  1. PROMACTA [Suspect]
     Active Substance: ELTROMBOPAG OLAMINE
     Indication: PANCREATIC CARCINOMA
     Route: 048
     Dates: start: 20180910, end: 20200113

REACTIONS (1)
  - Death [None]

NARRATIVE: CASE EVENT DATE: 20200113
